FAERS Safety Report 18218600 (Version 1)
Quarter: 2020Q3

REPORT INFORMATION
  Report Type: Spontaneous
  Country: PL (occurrence: PL)
  Receive Date: 20200901
  Receipt Date: 20200901
  Transmission Date: 20201103
  Serious: Yes (Other)
  Sender: FDA-Public Use
  Company Number: NVSC2020PL235849

PATIENT
  Age: 70 Year
  Sex: Male

DRUGS (5)
  1. TRAMETINIB [Suspect]
     Active Substance: TRAMETINIB
     Indication: MALIGNANT MELANOMA
     Dosage: 2 MG, QD
     Route: 065
     Dates: start: 201901
  2. TRAMETINIB [Suspect]
     Active Substance: TRAMETINIB
     Dosage: 1 MG, QD
     Route: 065
  3. DABRAFENIB [Suspect]
     Active Substance: DABRAFENIB
     Indication: MALIGNANT MELANOMA
     Dosage: 150 MG, BID
     Route: 065
     Dates: start: 201901
  4. DABRAFENIB [Suspect]
     Active Substance: DABRAFENIB
     Dosage: 100 MG, BID (DAILY)
     Route: 065
  5. DABRAFENIB [Suspect]
     Active Substance: DABRAFENIB
     Dosage: 75 MG, BID
     Route: 065

REACTIONS (9)
  - C-reactive protein increased [Unknown]
  - Chills [Recovered/Resolved]
  - Hypokalaemia [Unknown]
  - Chills [Unknown]
  - Dermatitis acneiform [Unknown]
  - Rash macular [Unknown]
  - Neutropenia [Unknown]
  - Pyrexia [Unknown]
  - Pyrexia [Recovered/Resolved]
